FAERS Safety Report 17495945 (Version 2)
Quarter: 2021Q2

REPORT INFORMATION
  Report Type: Spontaneous
  Country: US (occurrence: US)
  Receive Date: 20200303
  Receipt Date: 20210518
  Transmission Date: 20210716
  Serious: Yes (Hospitalization, Other)
  Sender: FDA-Public Use
  Company Number: US-ASTRAZENECA-2020SE30641

PATIENT
  Age: 41 Year
  Sex: Male
  Weight: 85.7 kg

DRUGS (27)
  1. PRILOSEC [Suspect]
     Active Substance: OMEPRAZOLE MAGNESIUM
     Indication: GASTROOESOPHAGEAL REFLUX DISEASE
     Route: 048
     Dates: start: 201501, end: 201712
  2. VIVITROL [Concomitant]
     Active Substance: NALTREXONE
     Indication: DRUG ABUSE
     Dates: start: 201706
  3. PROTONIX [Suspect]
     Active Substance: PANTOPRAZOLE SODIUM
     Indication: GASTROOESOPHAGEAL REFLUX DISEASE
     Route: 065
     Dates: start: 2015, end: 2017
  4. PROTONIX [Suspect]
     Active Substance: PANTOPRAZOLE SODIUM
     Indication: GASTROOESOPHAGEAL REFLUX DISEASE
     Dosage: GENERIC
     Route: 065
     Dates: end: 2017
  5. RANITIDINE. [Concomitant]
     Active Substance: RANITIDINE
     Dates: end: 201601
  6. PEPTO?BISMOL [Concomitant]
     Active Substance: BISMUTH SUBSALICYLATE
     Dates: start: 201301
  7. ROLAIDS [Concomitant]
     Active Substance: CALCIUM CARBONATE\MAGNESIUM HYDROXIDE
     Dates: start: 201301
  8. TRAMADOL. [Concomitant]
     Active Substance: TRAMADOL
     Dates: start: 201301
  9. HYDROMORPHONE [Concomitant]
     Active Substance: HYDROMORPHONE
     Dates: start: 201301
  10. SUCRALFATE. [Concomitant]
     Active Substance: SUCRALFATE
     Dates: start: 201301
  11. PRILOSEC [Suspect]
     Active Substance: OMEPRAZOLE MAGNESIUM
     Indication: GASTROOESOPHAGEAL REFLUX DISEASE
     Dosage: GENERIC
     Route: 065
     Dates: end: 2017
  12. FAMOTIDINE. [Concomitant]
     Active Substance: FAMOTIDINE
     Dates: end: 201601
  13. OXYCODONE [Concomitant]
     Active Substance: OXYCODONE
     Dates: start: 201301
  14. ROCURONIUM [Concomitant]
     Active Substance: ROCURONIUM BROMIDE
     Dates: start: 201301
  15. CEFAZOLIN [Concomitant]
     Active Substance: CEFAZOLIN
     Dates: start: 201301
  16. NALTREXONE [Concomitant]
     Active Substance: NALTREXONE
     Indication: DRUG ABUSE
     Dates: start: 201506, end: 201706
  17. NYSTATIN. [Concomitant]
     Active Substance: NYSTATIN
     Indication: FUNGAL INFECTION
     Dates: start: 201702
  18. CEPHALEXIN. [Concomitant]
     Active Substance: CEPHALEXIN
     Dates: start: 201301
  19. MIDAZOLAM. [Concomitant]
     Active Substance: MIDAZOLAM
     Dates: start: 201301
  20. TUMS [Concomitant]
     Active Substance: CALCIUM CARBONATE
     Dates: start: 201301
  21. PROPOFOL. [Concomitant]
     Active Substance: PROPOFOL
     Dates: start: 201301
  22. CYCLOBENZAPRINE. [Concomitant]
     Active Substance: CYCLOBENZAPRINE
     Dates: start: 201301
  23. FENTANYL. [Concomitant]
     Active Substance: FENTANYL
     Dates: start: 201301
  24. DEXAMETHASONE. [Concomitant]
     Active Substance: DEXAMETHASONE
     Dates: start: 201301
  25. PRILOSEC [Suspect]
     Active Substance: OMEPRAZOLE MAGNESIUM
     Indication: GASTROOESOPHAGEAL REFLUX DISEASE
     Route: 048
     Dates: start: 2015, end: 2017
  26. ONDANSETRON [Concomitant]
     Active Substance: ONDANSETRON
     Dates: start: 201301
  27. VENTOLIN [Concomitant]
     Active Substance: ALBUTEROL SULFATE
     Dates: start: 201301

REACTIONS (3)
  - Chronic kidney disease [Not Recovered/Not Resolved]
  - Renal failure [Unknown]
  - Acute kidney injury [Not Recovered/Not Resolved]

NARRATIVE: CASE EVENT DATE: 2018
